FAERS Safety Report 11247149 (Version 1)
Quarter: 2015Q3

REPORT INFORMATION
  Report Type: Spontaneous
  Country: GB (occurrence: None)
  Receive Date: 20150706
  Receipt Date: 20150706
  Transmission Date: 20151125
  Serious: No
  Sender: FDA-Public Use
  Company Number: None

PATIENT
  Age: 37 Year
  Sex: Female
  Weight: 108.86 kg

DRUGS (2)
  1. DULOXETINE 30MG CADUCEUS [Suspect]
     Active Substance: DULOXETINE
     Indication: DEPRESSION
     Dosage: 1 TABLET
     Route: 048
  2. LANSOPRAZOLE. [Concomitant]
     Active Substance: LANSOPRAZOLE

REACTIONS (8)
  - Feeling abnormal [None]
  - Anger [None]
  - Back pain [None]
  - Crying [None]
  - Sleep disorder [None]
  - Nasopharyngitis [None]
  - Apathy [None]
  - Pain [None]
